FAERS Safety Report 9283772 (Version 1)
Quarter: 2013Q2

REPORT INFORMATION
  Report Type: Report from Study
  Country: CA (occurrence: CA)
  Receive Date: 20130510
  Receipt Date: 20130510
  Transmission Date: 20140414
  Serious: Yes (Hospitalization)
  Sender: FDA-Public Use
  Company Number: CA-ABBOTT-13P-028-1083865-00

PATIENT
  Age: 53 Year
  Sex: Female

DRUGS (7)
  1. HUMIRA [Suspect]
     Indication: CROHN^S DISEASE
     Route: 058
     Dates: start: 20090115, end: 20090926
  2. PREDNISONE [Concomitant]
     Indication: SMALL INTESTINAL OBSTRUCTION
     Dates: start: 20091007, end: 20091013
  3. PREDNISONE [Concomitant]
     Indication: CROHN^S DISEASE
     Dates: start: 20091014
  4. PREDNISONE [Concomitant]
     Indication: SMALL INTESTINAL STENOSIS
  5. PREDNISONE [Concomitant]
     Indication: ILEAL STENOSIS
  6. SALOFALK [Concomitant]
     Indication: CROHN^S DISEASE
     Dates: start: 20071106
  7. TEMOVATE [Concomitant]
     Indication: LICHEN PLANUS
     Route: 061
     Dates: start: 20090509, end: 20110602

REACTIONS (1)
  - Intestinal stenosis [Unknown]
